FAERS Safety Report 9066852 (Version 1)
Quarter: 2013Q1

REPORT INFORMATION
  Report Type: Report from Study
  Country: US (occurrence: US)
  Receive Date: 20130131
  Receipt Date: 20130131
  Transmission Date: 20140127
  Serious: No
  Sender: FDA-Public Use
  Company Number: US-ABBOTT-12P-163-1007839-00

PATIENT
  Age: 34 Year
  Sex: Male

DRUGS (5)
  1. HUMIRA [Suspect]
     Indication: RHEUMATOID ARTHRITIS
     Dates: start: 201203
  2. MOTRIN [Concomitant]
     Indication: ARTHRITIS
  3. HYDROCODONE [Concomitant]
     Indication: ARTHRALGIA
     Dosage: 10/50 AS NEEDED
  4. CYMBALTA [Concomitant]
     Indication: PAIN
     Dosage: ONE AT BEDTIME
  5. KLONOPIN [Concomitant]
     Indication: NEURALGIA

REACTIONS (3)
  - Chills [Not Recovered/Not Resolved]
  - Bronchitis [Not Recovered/Not Resolved]
  - Back pain [Not Recovered/Not Resolved]
